FAERS Safety Report 9441019 (Version 1)
Quarter: 2013Q3

REPORT INFORMATION
  Report Type: Spontaneous
  Country: US (occurrence: US)
  Receive Date: 20130805
  Receipt Date: 20130805
  Transmission Date: 20140515
  Serious: No
  Sender: FDA-Public Use
  Company Number: US-PFIZER INC-2013226502

PATIENT
  Age: 54 Year
  Sex: Male
  Weight: 83.9 kg

DRUGS (5)
  1. VIAGRA [Suspect]
     Indication: ERECTILE DYSFUNCTION
     Dosage: 100 MG, AS NEEDED
     Route: 048
  2. VIAGRA [Suspect]
     Dosage: 50 MG, AS NEEDED
     Route: 048
  3. VIAGRA [Suspect]
     Dosage: 100 MG, AS NEEDED
  4. NORVASC [Concomitant]
     Indication: HYPERTENSION
     Dosage: UNK
  5. PRAVASTATIN [Concomitant]
     Indication: BLOOD CHOLESTEROL INCREASED
     Dosage: UNK

REACTIONS (3)
  - Drug intolerance [Unknown]
  - Suspected counterfeit product [Unknown]
  - Drug ineffective [Unknown]
